FAERS Safety Report 9553606 (Version 1)
Quarter: 2013Q3

REPORT INFORMATION
  Report Type: Spontaneous
  Country: US (occurrence: None)
  Receive Date: 20130815
  Receipt Date: 20130815
  Transmission Date: 20140515
  Serious: No
  Sender: FDA-Public Use
  Company Number: ADR-2012-01298

PATIENT
  Sex: Male

DRUGS (2)
  1. BACLOFEN [Suspect]
  2. DILAUDID (HYDROMORPHONE) [Concomitant]

REACTIONS (3)
  - Implant site reaction [None]
  - Pain [None]
  - Therapeutic response decreased [None]
